FAERS Safety Report 8488605-2 (Version None)
Quarter: 2012Q3

REPORT INFORMATION
  Report Type: 
  Country: None (occurrence: None)
  Receive Date: 20120705
  Receipt Date: 20120629
  Transmission Date: 20120928
  Serious: Yes (Disabling, Other)
  Sender: FDA-Public Use
  Company Number: PHHY2012FR047485

PATIENT
  Sex: Female
  Weight: 59 kg

DRUGS (3)
  1. TASIGNA [Suspect]
     Indication: CHRONIC MYELOID LEUKAEMIA
     Dosage: 400 MG DAILY
     Route: 048
     Dates: start: 20060701, end: 20110401
  2. KARDEGIC [Concomitant]
     Dosage: 160 MG, DAILY
  3. TASIGNA [Suspect]
     Dosage: 400 MG, UNK
     Route: 048
     Dates: start: 20110415, end: 20110901

REACTIONS (12)
  - VERTEBRAL ARTERY HYPOPLASIA [None]
  - HYPOKINESIA [None]
  - CEREBELLAR SYNDROME [None]
  - VIITH NERVE PARALYSIS [None]
  - BALANCE DISORDER [None]
  - APHONIA [None]
  - CAROTID ARTERIOSCLEROSIS [None]
  - DYSARTHRIA [None]
  - PARESIS [None]
  - THROMBOTIC STROKE [None]
  - SENSORY LOSS [None]
  - GAIT DISTURBANCE [None]
